FAERS Safety Report 4277398-0 (Version None)
Quarter: 2004Q1

REPORT INFORMATION
  Report Type: 
  Country: None (occurrence: None)
  Receive Date: 20040120
  Receipt Date: 20040106
  Transmission Date: 20041129
  Serious: Yes (Hospitalization)
  Sender: FDA-Public Use
  Company Number: B01200302060

PATIENT
  Age: 66 Year
  Sex: Male
  Weight: 83.5 kg

DRUGS (12)
  1. CISPLATIN [Suspect]
     Indication: CARCINOMA
     Dosage: 100 MG/M2 OTHER - INTRAVENOUS NOS
     Route: 042
     Dates: start: 20030729, end: 20030729
  2. ACETYLSALICYLIC ACID SRT [Concomitant]
  3. ATORVASTATIN [Concomitant]
  4. DILTIAZEM [Concomitant]
  5. ALLOPURINOL [Concomitant]
  6. METFORMIN HCL [Concomitant]
  7. ONDANSETRON HCL [Concomitant]
  8. DEXAMETHASONE [Concomitant]
  9. PROCHLORPERAZINE [Concomitant]
  10. LORAZEPAM [Concomitant]
  11. FUROSEMIDE [Concomitant]
  12. METOCLOPRAMIDE [Concomitant]

REACTIONS (13)
  - ANXIETY [None]
  - C-REACTIVE PROTEIN INCREASED [None]
  - CHEST PAIN [None]
  - DYSPNOEA [None]
  - ELECTROCARDIOGRAM ABNORMAL [None]
  - HYPOKALAEMIA [None]
  - INCREASED BRONCHIAL SECRETION [None]
  - LEUKOPENIA [None]
  - MALIGNANT NEOPLASM PROGRESSION [None]
  - NEUTROPENIA [None]
  - RESPIRATORY DISTRESS [None]
  - SPINAL OSTEOARTHRITIS [None]
  - SPUTUM RETENTION [None]
